FAERS Safety Report 21213526 (Version 3)
Quarter: 2022Q4

REPORT INFORMATION
  Report Type: Spontaneous
  Country: US (occurrence: US)
  Receive Date: 20220815
  Receipt Date: 20221027
  Transmission Date: 20230113
  Serious: No
  Sender: FDA-Public Use
  Company Number: US-BRISTOL-MYERS SQUIBB COMPANY-2022-090052

PATIENT
  Age: 47 Year
  Sex: Male
  Weight: 75.74 kg

DRUGS (2)
  1. REVLIMID [Suspect]
     Active Substance: LENALIDOMIDE
     Indication: Plasma cell myeloma
     Dosage: 10 MG, DAILY
     Route: 048
     Dates: start: 20220330
  2. REVLIMID [Suspect]
     Active Substance: LENALIDOMIDE
     Dosage: 1-21 Q28 DAYS
     Route: 048
     Dates: start: 20220330

REACTIONS (2)
  - Fatigue [Not Recovered/Not Resolved]
  - Gastroenteritis viral [Unknown]
